FAERS Safety Report 10387939 (Version 1)
Quarter: 2014Q3

REPORT INFORMATION
  Report Type: Spontaneous
  Country: FR (occurrence: FR)
  Receive Date: 20140815
  Receipt Date: 20140815
  Transmission Date: 20150326
  Serious: Yes (Life-Threatening, Hospitalization)
  Sender: FDA-Public Use
  Company Number: FR-ASTRAZENECA-2014SE59593

PATIENT
  Age: 15401 Day
  Sex: Male

DRUGS (9)
  1. EFFEXOR [Interacting]
     Active Substance: VENLAFAXINE HYDROCHLORIDE
     Route: 048
     Dates: start: 20140625, end: 20140721
  2. NOCTAMIDE [Interacting]
     Active Substance: LORMETAZEPAM
     Route: 048
     Dates: start: 20140625, end: 20140721
  3. XEROQUEL [Suspect]
     Active Substance: QUETIAPINE FUMARATE
     Route: 048
     Dates: start: 20140625, end: 20140721
  4. TERCIAN [Interacting]
     Active Substance: CYAMEMAZINE
     Route: 048
     Dates: start: 20140625, end: 20140721
  5. TRANXENE T-TAB [Interacting]
     Active Substance: CLORAZEPATE DIPOTASSIUM
     Route: 048
     Dates: start: 20140625, end: 20140721
  6. TIAPRIDAL [Interacting]
     Active Substance: TIAPRIDE HYDROCHLORIDE
     Route: 048
     Dates: start: 20140625, end: 20140721
  7. ATARAX [Interacting]
     Active Substance: HYDROXYZINE\HYDROXYZINE HYDROCHLORIDE
     Dosage: 25 MG, 3 DF MAXIMUM AS REQUIRED
     Route: 048
     Dates: start: 20140627, end: 20140721
  8. VALDOXAN [Interacting]
     Active Substance: AGOMELATINE
     Route: 048
     Dates: start: 20140718, end: 20140721
  9. THERALENE [Interacting]
     Active Substance: TRIMEPRAZINE
     Route: 048
     Dates: start: 20140627, end: 20140721

REACTIONS (4)
  - Drug interaction [Unknown]
  - Pneumonia aspiration [Unknown]
  - Rhabdomyolysis [Unknown]
  - Coma [Unknown]

NARRATIVE: CASE EVENT DATE: 201407
